FAERS Safety Report 11432129 (Version 1)
Quarter: 2015Q3

REPORT INFORMATION
  Report Type: Spontaneous
  Country: US (occurrence: US)
  Receive Date: 20150828
  Receipt Date: 20150828
  Transmission Date: 20151125
  Serious: No
  Sender: FDA-Public Use
  Company Number: US-BAYER-2015-404967

PATIENT
  Age: 88 Year
  Sex: Male
  Weight: 77.98 kg

DRUGS (4)
  1. ASPIRIN LOW DOSE [Concomitant]
     Active Substance: ASPIRIN
     Dosage: UNK
  2. MULTIVITAMINS [Concomitant]
     Active Substance: VITAMINS
     Dosage: UNK
  3. CLARITIN [Suspect]
     Active Substance: LORATADINE
     Indication: PAIN IN EXTREMITY
     Dosage: 1 DF, UNK
     Route: 048
     Dates: start: 201508
  4. CLARITIN [Suspect]
     Active Substance: LORATADINE
     Indication: CHEST PAIN
     Dosage: 10 DF, UNK
     Route: 048
     Dates: start: 20150814

REACTIONS (7)
  - Fatigue [Unknown]
  - Cough [Unknown]
  - Product use issue [Unknown]
  - Off label use [Unknown]
  - Sneezing [Unknown]
  - Unevaluable event [Unknown]
  - Pyrexia [Unknown]

NARRATIVE: CASE EVENT DATE: 20150814
